FAERS Safety Report 4910400-9 (Version None)
Quarter: 2006Q1

REPORT INFORMATION
  Report Type: 
  Country: None (occurrence: None)
  Receive Date: 20060213
  Receipt Date: 20050406
  Transmission Date: 20060701
  Serious: Yes (Hospitalization, Disabling, Other)
  Sender: FDA-Public Use
  Company Number: US-MERCK-0504USA01103

PATIENT
  Age: 55 Year
  Sex: Male
  Weight: 116 kg

DRUGS (1)
  1. VIOXX [Suspect]
     Route: 048
     Dates: start: 20001001, end: 20020501

REACTIONS (18)
  - ABDOMINAL PAIN UPPER [None]
  - BASAL CELL CARCINOMA [None]
  - BENIGN PROSTATIC HYPERPLASIA [None]
  - BLOOD GLUCOSE INCREASED [None]
  - BRAIN STEM INFARCTION [None]
  - CEREBRAL ATROPHY [None]
  - CEREBRAL ISCHAEMIA [None]
  - CEREBROVASCULAR ACCIDENT [None]
  - DEPRESSION [None]
  - DYSPNOEA [None]
  - ERECTILE DYSFUNCTION [None]
  - HEPATIC STEATOSIS [None]
  - HYPERLIPIDAEMIA [None]
  - HYPERTONIC BLADDER [None]
  - PULMONARY EMBOLISM [None]
  - TOOTH EXTRACTION [None]
  - TOOTH SOCKET HAEMORRHAGE [None]
  - URINARY INCONTINENCE [None]
